FAERS Safety Report 7535892-0 (Version None)
Quarter: 2011Q2

REPORT INFORMATION
  Report Type: 
  Country: None (occurrence: None)
  Receive Date: 20110524
  Receipt Date: 20110420
  Transmission Date: 20111010
  Serious: Yes (Other)
  Sender: FDA-Public Use
  Company Number: 031729

PATIENT
  Sex: Female

DRUGS (3)
  1. BENADRYL /0000402/ [Concomitant]
  2. CIMZIA [Suspect]
     Indication: RHEUMATOID ARTHRITIS
     Dosage: (SUBCUTANEOUS)
     Route: 058
     Dates: start: 20110406, end: 20110406
  3. PREDNISONE [Concomitant]

REACTIONS (3)
  - DYSPNOEA [None]
  - INJECTION SITE PHOTOSENSITIVITY REACTION [None]
  - INJECTION SITE SWELLING [None]
